FAERS Safety Report 4665938-9 (Version None)
Quarter: 2005Q2

REPORT INFORMATION
  Report Type: 
  Country: None (occurrence: None)
  Receive Date: 20050517
  Receipt Date: 20050216
  Transmission Date: 20051028
  Serious: No
  Sender: FDA-Public Use
  Company Number: S05-USA-00887-01

PATIENT
  Age: 75 Year
  Sex: Female

DRUGS (15)
  1. NAMENDA [Suspect]
     Indication: DEMENTIA ALZHEIMER'S TYPE
     Dosage: 5 MG QD PO
     Route: 048
     Dates: start: 20050215
  2. OCUVITE [Concomitant]
  3. COENZYME Q10 [Concomitant]
  4. KLOR-CON [Concomitant]
  5. LORAZEPAM [Concomitant]
  6. TOPROL-XL [Concomitant]
  7. PLAVIX [Concomitant]
  8. FUROSEMIDE [Concomitant]
  9. CELEBREX [Concomitant]
  10. WARFARIN SODIUM [Concomitant]
  11. DURAGESIX PATCH [Concomitant]
  12. ZOLOFT [Concomitant]
  13. ACTONEL [Concomitant]
  14. VITAMIN E [Concomitant]
  15. ASCORBIC ACID [Concomitant]

REACTIONS (2)
  - FEELING JITTERY [None]
  - MUSCLE TWITCHING [None]
